FAERS Safety Report 21510558 (Version 1)
Quarter: 2022Q4

REPORT INFORMATION
  Report Type: Spontaneous
  Country: US (occurrence: US)
  Receive Date: 20221026
  Receipt Date: 20221026
  Transmission Date: 20230113
  Serious: Yes (Other)
  Sender: FDA-Public Use
  Company Number: US-INCYTE CORPORATION-2022IN010241

PATIENT

DRUGS (1)
  1. JAKAFI [Suspect]
     Active Substance: RUXOLITINIB
     Indication: Polycythaemia vera
     Dosage: 10 MILLIGRAM, BID
     Route: 048
     Dates: start: 20220927

REACTIONS (10)
  - Myocardial infarction [Unknown]
  - Palpitations [Unknown]
  - Anxiety [Unknown]
  - Nightmare [Unknown]
  - Gait disturbance [Unknown]
  - Product dose omission issue [Unknown]
  - Hypertension [Unknown]
  - Blood cholesterol increased [Unknown]
  - Dizziness [Recovered/Resolved]
  - Vertigo [Unknown]
